FAERS Safety Report 14277587 (Version 2)
Quarter: 2018Q1

REPORT INFORMATION
  Report Type: Spontaneous
  Country: AT (occurrence: AT)
  Receive Date: 20171211
  Receipt Date: 20180111
  Transmission Date: 20180508
  Serious: Yes (Other)
  Sender: FDA-Public Use
  Company Number: AT-OTSUKA-2016_012927

PATIENT
  Age: 38 Year
  Sex: Male
  Weight: 77 kg

DRUGS (16)
  1. ABILIFY [Suspect]
     Active Substance: ARIPIPRAZOLE
     Indication: PRODUCT USED FOR UNKNOWN INDICATION
     Dosage: 20 MG, UNK
     Route: 048
     Dates: start: 20160422, end: 20160506
  2. ABILIFY [Suspect]
     Active Substance: ARIPIPRAZOLE
     Dosage: 20 MG, UNK
     Route: 048
     Dates: start: 20160527, end: 20160527
  3. ZYPREXA [Suspect]
     Active Substance: OLANZAPINE
     Indication: PRODUCT USED FOR UNKNOWN INDICATION
     Dosage: 20 MG, UNK
     Route: 048
     Dates: start: 20160420
  4. TRUXAL [Suspect]
     Active Substance: CHLORPROTHIXENE
     Dosage: 250 MG, UNK
     Route: 048
     Dates: start: 20160425, end: 20160425
  5. TRUXAL [Suspect]
     Active Substance: CHLORPROTHIXENE
     Dosage: 200 MG, UNK
     Route: 048
     Dates: start: 20160506, end: 20160517
  6. ALPRAZOLAM. [Concomitant]
     Active Substance: ALPRAZOLAM
     Indication: PRODUCT USED FOR UNKNOWN INDICATION
     Dosage: 1 MG, UNK
     Route: 065
     Dates: start: 20160425
  7. TRUXAL [Suspect]
     Active Substance: CHLORPROTHIXENE
     Indication: ACUTE PSYCHOSIS
     Dosage: 150 MG, UNK
     Route: 048
     Dates: start: 20160422, end: 20160423
  8. AKINETON [Concomitant]
     Active Substance: BIPERIDEN HYDROCHLORIDE
     Indication: PRODUCT USED FOR UNKNOWN INDICATION
     Dosage: 4 MG, UNK
     Route: 048
     Dates: start: 20160427
  9. ABILIFY [Suspect]
     Active Substance: ARIPIPRAZOLE
     Dosage: 30 MG, UNK
     Route: 048
     Dates: start: 20160507, end: 20160526
  10. ZYPREXA [Suspect]
     Active Substance: OLANZAPINE
     Indication: ACUTE PSYCHOSIS
     Dosage: 10 MG, UNK
     Route: 048
     Dates: start: 20160415, end: 20160419
  11. TRUXAL [Suspect]
     Active Substance: CHLORPROTHIXENE
     Indication: PRODUCT USED FOR UNKNOWN INDICATION
     Dosage: 200 MG, UNK
     Route: 048
     Dates: start: 20160424, end: 20160424
  12. TRUXAL [Suspect]
     Active Substance: CHLORPROTHIXENE
     Dosage: 400 MG, UNK
     Route: 048
     Dates: start: 20160426, end: 20160505
  13. ABILIFY [Suspect]
     Active Substance: ARIPIPRAZOLE
     Indication: ACUTE PSYCHOSIS
     Dosage: 30 MG, UNK
     Route: 048
     Dates: start: 20160420, end: 20160421
  14. ABILIFY [Suspect]
     Active Substance: ARIPIPRAZOLE
     Dosage: 30 MG, UNK
     Route: 048
     Dates: start: 20160528
  15. TRUXAL [Suspect]
     Active Substance: CHLORPROTHIXENE
     Dosage: 160 MG, UNK
     Route: 048
     Dates: start: 20160518
  16. XANOR [Concomitant]
     Active Substance: ALPRAZOLAM
     Indication: PRODUCT USED FOR UNKNOWN INDICATION
     Dosage: 1 MG, UNK
     Route: 048
     Dates: start: 20160425

REACTIONS (4)
  - Hepatic enzyme increased [Recovering/Resolving]
  - Off label use [Unknown]
  - Akathisia [Recovering/Resolving]
  - Product use in unapproved indication [Unknown]

NARRATIVE: CASE EVENT DATE: 20160429
